FAERS Safety Report 13275508 (Version 10)
Quarter: 2020Q4

REPORT INFORMATION
  Report Type: Spontaneous
  Country: DE (occurrence: DE)
  Receive Date: 20170228
  Receipt Date: 20201105
  Transmission Date: 20210113
  Serious: Yes (Life-Threatening, Hospitalization, Other)
  Sender: FDA-Public Use
  Company Number: DE-AMGEN-DEUSP2017029595

PATIENT
  Age: 64 Year
  Sex: Female
  Weight: 72 kg

DRUGS (8)
  1. ENBREL [Suspect]
     Active Substance: ETANERCEPT
     Dosage: 25 MILLIGRAM (EVERY 4 DAYS)
     Route: 065
     Dates: start: 2009, end: 20170103
  2. ARCOXIA [Concomitant]
     Active Substance: ETORICOXIB
     Indication: RHEUMATOID ARTHRITIS
     Dosage: 60 MILLIGRAM, QD
     Route: 048
     Dates: start: 201612, end: 2017
  3. PREDNISOLONE. [Concomitant]
     Active Substance: PREDNISOLONE
     Indication: RHEUMATOID ARTHRITIS
     Dosage: 7.5 MILLIGRAM
     Route: 048
     Dates: start: 2000, end: 2017
  4. ENBREL [Suspect]
     Active Substance: ETANERCEPT
     Indication: RHEUMATOID ARTHRITIS
     Dosage: 25 MILLIGRAM (EVERY 4 DAYS)
     Route: 058
     Dates: start: 200604
  5. TEGRETAL RETARD [Concomitant]
     Active Substance: CARBAMAZEPINE
     Indication: EPILEPSY
     Dosage: 400 UNK, BID
     Dates: start: 1987
  6. CELEBREX [Concomitant]
     Active Substance: CELECOXIB
     Indication: RHEUMATOID ARTHRITIS
     Dosage: 200 MILLIGRAM, BID
     Dates: start: 2009, end: 201612
  7. DECORTIN [Concomitant]
     Active Substance: PREDNISONE
     Dosage: 7.5 MILLIGRAM
     Dates: start: 2007
  8. PANTOPRAZOL [PANTOPRAZOLE SODIUM SESQUIHYDRATE] [Concomitant]
     Active Substance: PANTOPRAZOLE SODIUM
     Indication: PROPHYLAXIS
     Dosage: 20 MILLIGRAM (2X)
     Dates: start: 2009

REACTIONS (8)
  - Immunosuppression [Recovering/Resolving]
  - Asthenia [Recovering/Resolving]
  - Weight decreased [Unknown]
  - Non-Hodgkin^s lymphoma stage I [Recovering/Resolving]
  - Pallor [Recovering/Resolving]
  - Dizziness [Recovering/Resolving]
  - Polyneuropathy [Recovering/Resolving]
  - Mucosal discolouration [Recovering/Resolving]

NARRATIVE: CASE EVENT DATE: 20170106
